FAERS Safety Report 7402674 (Version 3)
Quarter: 2013Q4

REPORT INFORMATION
  Report Type: Spontaneous
  Country: US (occurrence: US)
  Receive Date: 20100528
  Receipt Date: 20131210
  Transmission Date: 20140711
  Serious: Yes (Hospitalization)
  Sender: FDA-Public Use
  Company Number: US-JNJFOC-20100509015

PATIENT
  Age: 73 Year
  Sex: Male
  Weight: 83.46 kg

DRUGS (8)
  1. SANDOZ FENTANYL TRANSDERMAL SYSTEM [Suspect]
     Indication: PAIN
     Route: 062
     Dates: end: 201006
  2. SANDOZ FENTANYL TRANSDERMAL SYSTEM [Suspect]
     Indication: PAIN
     Route: 062
     Dates: start: 201006
  3. VITAMIN [Concomitant]
     Indication: NUTRITIONAL SUPPLEMENTATION
     Route: 048
  4. COZAAR [Concomitant]
     Indication: HYPERTENSION
     Route: 048
  5. PLAVIX [Concomitant]
     Indication: ANTICOAGULANT THERAPY
     Route: 048
  6. METOPROLOL [Concomitant]
     Indication: BLOOD PRESSURE
     Route: 048
  7. CADUET [Concomitant]
     Indication: ANTICOAGULANT THERAPY
     Dosage: 10/20MG EVERY DAY
     Route: 048
  8. CADUET [Concomitant]
     Indication: BLOOD PRESSURE
     Dosage: 10/20MG EVERY DAY
     Route: 048

REACTIONS (8)
  - Coronary artery occlusion [Not Recovered/Not Resolved]
  - Syncope [Recovered/Resolved]
  - Application site warmth [Recovered/Resolved]
  - Wrong technique in drug usage process [Recovered/Resolved]
  - Drug effect decreased [Not Recovered/Not Resolved]
  - Application site discolouration [Unknown]
  - Product quality issue [Unknown]
  - Product quality issue [Unknown]
